FAERS Safety Report 8602328 (Version 2)
Quarter: 2012Q4

REPORT INFORMATION
  Report Type: 
  Country: US (occurrence: US)
  Receive Date: 20120607
  Receipt Date: 20121019
  Transmission Date: 20130627
  Serious: Yes (Other)
  Sender: FDA-Public Use
  Company Number: US-BAYER-2012-055746

PATIENT
  Age: 18 Year
  Sex: Female
  Weight: 99.77 kg

DRUGS (3)
  1. YAZ [Suspect]
     Indication: CONTRACEPTION
     Dosage: UNK
     Dates: start: 20091019, end: 200912
  2. YASMIN [Suspect]
     Indication: CONTRACEPTION
     Dosage: UNK
     Dates: start: 20071113, end: 200807
  3. OCELLA [Suspect]
     Dosage: UNK
     Dates: start: 20080725, end: 200907

REACTIONS (5)
  - Cholelithiasis [None]
  - Cholecystitis chronic [None]
  - Injury [None]
  - Abdominal pain [None]
  - Pain [None]
